FAERS Safety Report 10177077 (Version 2)
Quarter: 2014Q2

REPORT INFORMATION
  Report Type: Report from Study
  Country: US (occurrence: US)
  Receive Date: 20140516
  Receipt Date: 20140516
  Transmission Date: 20141212
  Serious: Yes (Death, Other)
  Sender: FDA-Public Use
  Company Number: US-GILEAD-2014-0098836

PATIENT
  Age: 18 Year
  Sex: Female
  Weight: 45 kg

DRUGS (11)
  1. AZTREONAM LYSINE [Suspect]
     Indication: CYSTIC FIBROSIS
     Dosage: 75 MG, BID ALTERNATING WITH TOBRAMYCIN
     Route: 055
     Dates: start: 20101118, end: 20140128
  2. NUTREN 1.0 [Concomitant]
  3. MULTIVITAMINS [Concomitant]
  4. RETINOL W/VITAMIN D NOS [Concomitant]
  5. CREON [Concomitant]
  6. PULMOZYME [Concomitant]
  7. HYPERTONIC SALINE SOLUTION [Concomitant]
  8. ADVAIR [Concomitant]
  9. TOBRAMYCIN [Concomitant]
  10. ZITHROMAX [Concomitant]
  11. ALBUTEROL                          /00139501/ [Concomitant]

REACTIONS (11)
  - Death [Fatal]
  - Viral infection [Unknown]
  - Malaise [Unknown]
  - Inappropriate schedule of drug administration [Unknown]
  - Sinus congestion [Unknown]
  - Sputum increased [Unknown]
  - Feeling cold [Unknown]
  - Hyperhidrosis [Unknown]
  - Haemoptysis [Recovered/Resolved]
  - Weight decreased [Unknown]
  - Cough [Unknown]
